FAERS Safety Report 23818550 (Version 2)
Quarter: 2024Q2

REPORT INFORMATION
  Report Type: Report from Study
  Country: KR (occurrence: KR)
  Receive Date: 20240506
  Receipt Date: 20240523
  Transmission Date: 20240716
  Serious: Yes (Hospitalization)
  Sender: FDA-Public Use
  Company Number: KR-BoehringerIngelheim-2024-BI-024766

PATIENT
  Age: 76 Year
  Sex: Male
  Weight: 62.8 kg

DRUGS (3)
  1. AFATINIB [Suspect]
     Active Substance: AFATINIB
     Indication: EGFR gene mutation
     Route: 048
     Dates: start: 20191210, end: 20191215
  2. AFATINIB [Suspect]
     Active Substance: AFATINIB
     Indication: Non-small cell lung cancer
     Route: 048
     Dates: start: 20191216, end: 20191222
  3. AFATINIB [Suspect]
     Active Substance: AFATINIB
     Route: 048
     Dates: start: 20191231, end: 20201116

REACTIONS (2)
  - Herpes zoster [Recovered/Resolved]
  - Diarrhoea [Recovered/Resolved]

NARRATIVE: CASE EVENT DATE: 20191201
